FAERS Safety Report 8363858-X (Version None)
Quarter: 2012Q2

REPORT INFORMATION
  Report Type: 
  Country: None (occurrence: None)
  Receive Date: 20120516
  Receipt Date: 20120105
  Transmission Date: 20120825
  Serious: No
  Sender: FDA-Public Use
  Company Number: US-ALEXION-A201200036

PATIENT
  Sex: Male

DRUGS (3)
  1. BENADRYL [Concomitant]
     Indication: PROPHYLAXIS
     Dosage: 25 MG, UNK
  2. TYLENOL (CAPLET) [Concomitant]
     Indication: PROPHYLAXIS
     Dosage: 650 MG, UNK
  3. SOLIRIS [Suspect]
     Indication: PAROXYSMAL NOCTURNAL HAEMOGLOBINURIA
     Dosage: 900 MG, Q2W
     Route: 042

REACTIONS (1)
  - DEHYDRATION [None]
